FAERS Safety Report 24387249 (Version 1)
Quarter: 2024Q4

REPORT INFORMATION
  Report Type: Spontaneous
  Country: US (occurrence: US)
  Receive Date: 20241002
  Receipt Date: 20241002
  Transmission Date: 20250114
  Serious: Yes (Hospitalization)
  Sender: LUPIN
  Company Number: US-LUPIN HEALTHCARE (UK) LIMITED-2024-09429

PATIENT
  Age: 29 Year
  Sex: Male

DRUGS (11)
  1. LORAZEPAM [Suspect]
     Active Substance: LORAZEPAM
     Indication: Autism spectrum disorder
     Dosage: 1 MILLIGRAM, QD
     Route: 065
  2. SERTRALINE [Suspect]
     Active Substance: SERTRALINE HYDROCHLORIDE
     Indication: Autism spectrum disorder
     Dosage: UNK
     Route: 065
  3. SERTRALINE [Suspect]
     Active Substance: SERTRALINE HYDROCHLORIDE
     Dosage: UP TO 50?MG DAILY
     Route: 065
  4. ARIPIPRAZOLE [Suspect]
     Active Substance: ARIPIPRAZOLE
     Indication: Autism spectrum disorder
     Dosage: 2.5 MILLIGRAM, QD
     Route: 065
  5. BUSPIRONE [Suspect]
     Active Substance: BUSPIRONE HYDROCHLORIDE
     Indication: Autism spectrum disorder
     Dosage: 5 MILLIGRAM
     Route: 065
  6. RISPERIDONE [Concomitant]
     Active Substance: RISPERIDONE
     Indication: Autism spectrum disorder
     Dosage: 0.5 MILLILITER, QD
     Route: 065
  7. RISPERIDONE [Concomitant]
     Active Substance: RISPERIDONE
     Dosage: NIGHTLY
     Route: 065
  8. OLANZAPINE [Concomitant]
     Active Substance: OLANZAPINE
     Indication: Autism spectrum disorder
     Dosage: 5 MILLIGRAM, QD
     Route: 065
  9. VALPROATE [Concomitant]
     Active Substance: VALPROIC ACID
     Indication: Autism spectrum disorder
     Dosage: 500 MILLIGRAM (FORMULATION: EXTENDED RELEASE)
     Route: 065
  10. CLONAZEPAM [Concomitant]
     Active Substance: CLONAZEPAM
     Indication: Autism spectrum disorder
     Dosage: 0.25 MILLIGRAM, QD
     Route: 065
  11. NALTREXONE [Concomitant]
     Active Substance: NALTREXONE
     Indication: Autism spectrum disorder
     Dosage: 50 MILLIGRAM, QD
     Route: 065

REACTIONS (6)
  - Disinhibition [Recovered/Resolved]
  - Aggression [Recovered/Resolved]
  - Gastrointestinal disorder [Recovered/Resolved]
  - Sedation [Recovered/Resolved]
  - Drug ineffective for unapproved indication [Unknown]
  - Off label use [Unknown]
